FAERS Safety Report 19403305 (Version 1)
Quarter: 2021Q2

REPORT INFORMATION
  Report Type: Spontaneous
  Country: GB (occurrence: GB)
  Receive Date: 20210611
  Receipt Date: 20210611
  Transmission Date: 20210717
  Serious: Yes (Other)
  Sender: FDA-Public Use
  Company Number: GB-TEVA-2021-GB-1919631

PATIENT
  Age: 57 Year
  Sex: Female

DRUGS (2)
  1. OMEPRAZOL [Concomitant]
     Active Substance: OMEPRAZOLE
     Indication: DYSPEPSIA
  2. BECLOMETHASONE [Suspect]
     Active Substance: BECLOMETHASONE
     Route: 065

REACTIONS (6)
  - Epistaxis [Not Recovered/Not Resolved]
  - Head banging [Recovered/Resolved]
  - Sinus headache [Recovering/Resolving]
  - Dizziness [Not Recovered/Not Resolved]
  - Epistaxis [Not Recovered/Not Resolved]
  - Chills [Recovered/Resolved]

NARRATIVE: CASE EVENT DATE: 20210322
